FAERS Safety Report 8313949-4 (Version None)
Quarter: 2012Q2

REPORT INFORMATION
  Report Type: 
  Country: None (occurrence: None)
  Receive Date: 20120426
  Receipt Date: 20110808
  Transmission Date: 20120825
  Serious: Yes (Other)
  Sender: FDA-Public Use
  Company Number: US-TEVA-US021816

PATIENT
  Sex: Female
  Weight: 59 kg

DRUGS (8)
  1. PROVIGIL [Suspect]
     Indication: SOMNOLENCE
     Dosage: 100-200MG QD
     Route: 048
     Dates: start: 20070901, end: 20071127
  2. AXERT [Concomitant]
     Indication: MIGRAINE
     Route: 048
     Dates: start: 20030101
  3. DARVOCET [Concomitant]
     Indication: PAIN
     Dosage: 1-2 TABLETS QD
     Route: 048
     Dates: start: 20070501
  4. EFFEXOR XR [Concomitant]
     Indication: DEPRESSION
     Dosage: 150 MILLIGRAM;
     Route: 048
     Dates: start: 20060101
  5. TOPAMAX [Concomitant]
     Indication: MIGRAINE PROPHYLAXIS
     Dosage: 75 MILLIGRAM;
     Route: 048
     Dates: start: 20071001
  6. AMBIEN [Concomitant]
     Indication: SLEEP DISORDER
     Route: 048
     Dates: start: 20070501
  7. CLONAZEPAM [Concomitant]
     Indication: ANXIETY
     Dosage: 0.5-1MG QD
     Route: 048
     Dates: start: 20030101
  8. ALLEGRA [Concomitant]
     Indication: MULTIPLE ALLERGIES
     Dosage: 180 MILLIGRAM;
     Route: 048
     Dates: start: 20071101

REACTIONS (7)
  - SUICIDAL IDEATION [None]
  - ANGER [None]
  - DEPRESSION [None]
  - AGITATION [None]
  - TREMOR [None]
  - ANXIETY [None]
  - IRRITABILITY [None]
